FAERS Safety Report 12525685 (Version 3)
Quarter: 2018Q2

REPORT INFORMATION
  Report Type: Report from Study
  Country: DE (occurrence: DE)
  Receive Date: 20160705
  Receipt Date: 20180417
  Transmission Date: 20180711
  Serious: Yes (Hospitalization)
  Sender: FDA-Public Use
  Company Number: US-ASTRAZENECA-2016SE59377

PATIENT
  Age: 9 Month
  Sex: Female
  Weight: 9 kg

DRUGS (14)
  1. SYNAGIS [Suspect]
     Active Substance: PALIVIZUMAB
     Indication: PREMATURE BABY
     Dosage: 145 MG
     Route: 030
     Dates: start: 20160309, end: 20160309
  2. SYNAGIS [Suspect]
     Active Substance: PALIVIZUMAB
     Indication: PREMATURE BABY
     Dosage: 115 MG
     Route: 030
     Dates: start: 20151001, end: 20151001
  3. SYNAGIS [Suspect]
     Active Substance: PALIVIZUMAB
     Indication: PREMATURE BABY
     Dosage: 140 MG
     Route: 030
     Dates: start: 20160121, end: 20160121
  4. SALBUTAMOL [Concomitant]
     Active Substance: ALBUTEROL
     Indication: PRODUCT USED FOR UNKNOWN INDICATION
     Dosage: 3 DROPS IN 2 L SODIUM CHLORIDE 0.9%
     Route: 055
  5. SYNAGIS [Suspect]
     Active Substance: PALIVIZUMAB
     Indication: PREMATURE BABY
     Dosage: 115 MG
     Route: 030
     Dates: start: 20151102, end: 20151102
  6. SYNAGIS [Suspect]
     Active Substance: PALIVIZUMAB
     Indication: PREMATURE BABY
     Dosage: 135 MG
     Route: 030
     Dates: start: 20151214, end: 20151214
  7. SYNAGIS [Suspect]
     Active Substance: PALIVIZUMAB
     Indication: PREMATURE BABY
     Dosage: 150 MG
     Route: 030
     Dates: start: 20160414, end: 20160414
  8. SILDENAFIL. [Concomitant]
     Active Substance: SILDENAFIL
     Indication: PRODUCT USED FOR UNKNOWN INDICATION
     Route: 065
  9. ASPIRIN. [Concomitant]
     Active Substance: ASPIRIN
     Indication: PRODUCT USED FOR UNKNOWN INDICATION
     Route: 065
  10. OMEPRAZOL [Concomitant]
     Active Substance: OMEPRAZOLE
     Indication: PRODUCT USED FOR UNKNOWN INDICATION
     Route: 065
  11. D-FLUORETTEN [Concomitant]
     Indication: PRODUCT USED FOR UNKNOWN INDICATION
     Route: 065
  12. SYNAGIS [Suspect]
     Active Substance: PALIVIZUMAB
     Indication: PREMATURE BABY
     Dosage: 125 MG
     Route: 030
     Dates: start: 20151214, end: 20151214
  13. MONTELUKAST [Concomitant]
     Active Substance: MONTELUKAST SODIUM
     Indication: PRODUCT USED FOR UNKNOWN INDICATION
     Route: 065
  14. OXYGEN. [Concomitant]
     Active Substance: OXYGEN
     Indication: PRODUCT USED FOR UNKNOWN INDICATION
     Dosage: 1   1/MIN

REACTIONS (31)
  - Respiratory disorder [Unknown]
  - Lung infiltration [Unknown]
  - Rhinitis [Recovered/Resolved]
  - Rhinitis [Recovered/Resolved]
  - Obstruction [Recovering/Resolving]
  - Upper respiratory tract infection [Recovered/Resolved]
  - Pyrexia [Recovered/Resolved]
  - Intestinal dilatation [Unknown]
  - Flatulence [Unknown]
  - Pneumonia [Recovered/Resolved]
  - Dyspnoea [Recovering/Resolving]
  - Lung hyperinflation [Unknown]
  - Respiratory fatigue [Unknown]
  - Viral infection [Unknown]
  - Gastric dilatation [Unknown]
  - Bronchitis [Unknown]
  - Oxygen consumption increased [Unknown]
  - Enterovirus infection [Recovered/Resolved]
  - Tachypnoea [Recovered/Resolved]
  - General physical health deterioration [Recovered/Resolved]
  - Selective eating disorder [Recovered/Resolved]
  - Oedema [Recovered/Resolved]
  - Gastroenteritis [Recovered/Resolved]
  - Diarrhoea [Recovered/Resolved]
  - Weight increased [Unknown]
  - Bronchitis [Recovered/Resolved]
  - Oedema genital [Unknown]
  - Pneumonia [Recovered/Resolved]
  - General physical health deterioration [Recovering/Resolving]
  - Fluid overload [Recovered/Resolved]
  - Lower respiratory tract infection [Recovered/Resolved]

NARRATIVE: CASE EVENT DATE: 201511
